FAERS Safety Report 19310256 (Version 1)
Quarter: 2021Q2

REPORT INFORMATION
  Report Type: Spontaneous
  Country: CN (occurrence: CN)
  Receive Date: 20210526
  Receipt Date: 20210526
  Transmission Date: 20210717
  Serious: Yes (Other)
  Sender: FDA-Public Use
  Company Number: NVSC2021CN117001

PATIENT
  Age: 61 Year
  Sex: Female

DRUGS (2)
  1. VINORELBINE [Suspect]
     Active Substance: VINORELBINE TARTRATE
     Indication: BREAST CANCER METASTATIC
     Dosage: 80 MG ON DAYS 1 AND 8, EVERY 3 WEEKS ON 49 AND 71 DAYS
     Route: 065
  2. LAPATINIB [Suspect]
     Active Substance: LAPATINIB
     Indication: BREAST CANCER METASTATIC
     Dosage: 1000 MG, QD
     Route: 065

REACTIONS (3)
  - Metastases to central nervous system [Unknown]
  - Cholangitis sclerosing [Recovered/Resolved]
  - Drug-induced liver injury [Recovered/Resolved]
